FAERS Safety Report 5009775-4 (Version None)
Quarter: 2006Q2

REPORT INFORMATION
  Report Type: 
  Country: None (occurrence: None)
  Receive Date: 20060524
  Receipt Date: 20060329
  Transmission Date: 20061013
  Serious: Yes (Life-Threatening)
  Sender: FDA-Public Use
  Company Number: PHNU2006DE01564

PATIENT
  Age: 71 Year
  Sex: Male
  Weight: 98 kg

DRUGS (9)
  1. GLEEVEC [Suspect]
     Indication: CHRONIC MYELOID LEUKAEMIA
     Dosage: 400 MG, QD
     Route: 048
     Dates: start: 20030505
  2. DIOVAN [Concomitant]
     Dosage: 80 MG/DAY
     Route: 048
  3. CO-DIOVAN [Concomitant]
     Dosage: 80 MG/DAY
     Route: 048
  4. ALLOPURINOL [Concomitant]
     Dosage: 300 MG/DAY
     Route: 048
  5. BRONCHORETARD [Concomitant]
     Dosage: 350 MG/DAY
     Route: 048
  6. PANTOZOL [Concomitant]
     Dosage: 80 MG/DAY
     Route: 048
  7. DEXAMETHASONE TAB [Concomitant]
     Dosage: 12 MG/DAY
     Route: 048
  8. CLINDAMYCIN HCL [Concomitant]
     Dosage: 1800 MG/DAY
     Route: 048
  9. VIANI [Concomitant]
     Dosage: 2 PUFFS/DAY

REACTIONS (9)
  - BARRETT'S OESOPHAGUS [None]
  - BRONCHOSCOPY ABNORMAL [None]
  - COMPUTERISED TOMOGRAM ABNORMAL [None]
  - ESSENTIAL HYPERTENSION [None]
  - LUNG SQUAMOUS CELL CARCINOMA STAGE UNSPECIFIED [None]
  - MALIGNANT PLEURAL EFFUSION [None]
  - MEDIASTINOSCOPY [None]
  - PLEURODESIS [None]
  - X-RAY ABNORMAL [None]
